FAERS Safety Report 17015768 (Version 1)
Quarter: 2019Q4

REPORT INFORMATION
  Report Type: Spontaneous
  Country: US (occurrence: US)
  Receive Date: 20191111
  Receipt Date: 20191111
  Transmission Date: 20200122
  Serious: Yes (Death, Life-Threatening, Other)
  Sender: FDA-Public Use
  Company Number: PHHY2012US144158

PATIENT
  Age: 59 Year
  Sex: Female

DRUGS (5)
  1. WARFARIN [Suspect]
     Active Substance: WARFARIN
     Indication: CEREBROVASCULAR ACCIDENT
     Route: 048
  2. INTEGRILIN [Concomitant]
     Active Substance: EPTIFIBATIDE
     Indication: PRODUCT USED FOR UNKNOWN INDICATION
     Dosage: UNK
     Route: 065
  3. PLAVIX [Concomitant]
     Active Substance: CLOPIDOGREL BISULFATE
     Indication: PRODUCT USED FOR UNKNOWN INDICATION
     Route: 065
  4. ANGIOMAX [Suspect]
     Active Substance: BIVALIRUDIN
     Indication: PERCUTANEOUS CORONARY INTERVENTION
     Dosage: 0.75 MG/KG, BOLUS
     Route: 042
     Dates: start: 20120817
  5. ANGIOMAX [Suspect]
     Active Substance: BIVALIRUDIN
     Dosage: 1.75 MG/KG/HR, UNK
     Route: 042
     Dates: start: 20120817

REACTIONS (3)
  - Pulmonary haemorrhage [Unknown]
  - Dyspnoea [Unknown]
  - Acute pulmonary oedema [Fatal]

NARRATIVE: CASE EVENT DATE: 2012
